FAERS Safety Report 13835357 (Version 1)
Quarter: 2017Q3

REPORT INFORMATION
  Report Type: Report from Study
  Country: US (occurrence: US)
  Receive Date: 20170804
  Receipt Date: 20170804
  Transmission Date: 20171127
  Serious: Yes (Death, Hospitalization)
  Sender: FDA-Public Use
  Company Number: US-EMD SERONO-8172971

PATIENT
  Age: 52 Year
  Sex: Male
  Weight: 73 kg

DRUGS (12)
  1. AVELUMAB [Suspect]
     Active Substance: AVELUMAB
     Indication: COLON CANCER
     Dates: end: 201704
  2. LEUCOVORIN. [Suspect]
     Active Substance: LEUCOVORIN
     Indication: COLON CANCER
     Route: 042
     Dates: start: 20170405, end: 20170713
  3. FLUOROURACIL. [Suspect]
     Active Substance: FLUOROURACIL
     Indication: COLON CANCER
     Dosage: IV BOLUS INJECTION PRIOR TO INFUSION
     Route: 042
     Dates: start: 20170405, end: 20170713
  4. FLUOROURACIL. [Suspect]
     Active Substance: FLUOROURACIL
     Dosage: INFUSION DOSAGE
     Route: 042
     Dates: start: 20170405, end: 20170713
  5. ZOFRAN [Concomitant]
     Active Substance: ONDANSETRON HYDROCHLORIDE
     Indication: PRODUCT USED FOR UNKNOWN INDICATION
  6. BEVACIZUMAB. [Suspect]
     Active Substance: BEVACIZUMAB
     Indication: COLON CANCER
     Route: 042
     Dates: start: 20170405, end: 20170713
  7. PREPARATION H HYDROCORTISONE [Concomitant]
     Active Substance: HYDROCORTISONE
     Indication: PRODUCT USED FOR UNKNOWN INDICATION
  8. ALIGN [Concomitant]
     Active Substance: BIFIDOBACTERIUM LONGUM SUBSP. INFANTIS
     Indication: PRODUCT USED FOR UNKNOWN INDICATION
     Route: 048
  9. IRON [Concomitant]
     Active Substance: IRON
     Indication: MINERAL SUPPLEMENTATION
     Route: 048
  10. ETBX-011 [Suspect]
     Active Substance: INVESTIGATIONAL PRODUCT
     Indication: COLON CANCER
     Dosage: 5X10E11 VIRAL PROTEINS
     Route: 058
     Dates: start: 20170405, end: 20170612
  11. OXALIPLATIN. [Suspect]
     Active Substance: OXALIPLATIN
     Indication: COLON CANCER
     Route: 042
     Dates: start: 20170405, end: 20170713
  12. LISINOPRIL. [Concomitant]
     Active Substance: LISINOPRIL
     Indication: PRODUCT USED FOR UNKNOWN INDICATION
     Route: 048

REACTIONS (4)
  - Abdominal pain [Unknown]
  - Febrile neutropenia [Recovered/Resolved]
  - Sepsis [Fatal]
  - Small intestinal perforation [Fatal]

NARRATIVE: CASE EVENT DATE: 20170723
